FAERS Safety Report 9042448 (Version 1)
Quarter: 2013Q1

REPORT INFORMATION
  Report Type: Report from Study
  Country: US (occurrence: US)
  Receive Date: 20130129
  Receipt Date: 20130129
  Transmission Date: 20140127
  Serious: No
  Sender: FDA-Public Use
  Company Number: US-ABBOTT-12P-163-0907206-00

PATIENT
  Age: 79 Year
  Sex: Female

DRUGS (8)
  1. HUMIRA 40 MG/ 0.8 ML PRE-FILLED SYRINGE [Suspect]
     Indication: RHEUMATOID ARTHRITIS
  2. HYDROCODONE [Concomitant]
     Indication: PAIN
     Dosage: 10/325 MG AS REQUIRED
  3. GABAPENTIN [Concomitant]
     Indication: ARTHRITIS
     Dosage: AT NIGHT
  4. ZOCOR [Concomitant]
     Indication: BLOOD CHOLESTEROL
     Dosage: AT NIGHT
  5. OTC IMODIUM [Concomitant]
     Indication: ABDOMINAL DISCOMFORT
  6. OTC IMODIUM [Concomitant]
     Indication: DRUG THERAPY
  7. FOLIC ACID [Concomitant]
     Indication: PRODUCT USED FOR UNKNOWN INDICATION
  8. LASIX [Concomitant]
     Indication: OEDEMA PERIPHERAL
     Dosage: 1 1/2 TAB IN THE AM IN 1 TAB AT NIGHT

REACTIONS (3)
  - Injection site pain [Recovering/Resolving]
  - Palpitations [Recovering/Resolving]
  - Scleral disorder [Recovering/Resolving]
